FAERS Safety Report 25652343 (Version 1)
Quarter: 2025Q3

REPORT INFORMATION
  Report Type: Spontaneous
  Country: CA (occurrence: CA)
  Receive Date: 20250807
  Receipt Date: 20250807
  Transmission Date: 20251021
  Serious: Yes (Hospitalization, Other)
  Sender: ALEXION PHARMACEUTICALS
  Company Number: CA-AstraZeneca-CH-00925154AM

PATIENT
  Sex: Male

DRUGS (1)
  1. BREZTRI [Suspect]
     Active Substance: BUDESONIDE\FORMOTEROL\GLYCOPYRROLATE

REACTIONS (8)
  - Oxygen saturation decreased [Unknown]
  - Rash [Unknown]
  - Sinus congestion [Unknown]
  - Cataract [Unknown]
  - Chills [Unknown]
  - Dizziness [Unknown]
  - Oral candidiasis [Unknown]
  - Pharyngeal swelling [Unknown]
